FAERS Safety Report 9761124 (Version 2)
Quarter: 2014Q1

REPORT INFORMATION
  Report Type: Spontaneous
  Country: US (occurrence: US)
  Receive Date: 20131216
  Receipt Date: 20140107
  Transmission Date: 20141002
  Serious: No
  Sender: FDA-Public Use
  Company Number: US-BIOGENIDEC-2013BI104950

PATIENT
  Sex: Female
  Weight: 89 kg

DRUGS (12)
  1. TECFIDERA [Suspect]
     Indication: PRODUCT USED FOR UNKNOWN INDICATION
     Route: 048
  2. TECFIDERA [Suspect]
     Indication: PRODUCT USED FOR UNKNOWN INDICATION
     Route: 048
  3. KEPPRA [Concomitant]
  4. BACLOFEN [Concomitant]
  5. PANTOPRAZOLE [Concomitant]
  6. IRON [Concomitant]
  7. VITAMIN C [Concomitant]
  8. FOLIC ACID [Concomitant]
  9. KLONOPIN [Concomitant]
  10. VITAMIN D [Concomitant]
  11. VITAMIN E [Concomitant]
  12. ASPIRIN [Concomitant]

REACTIONS (5)
  - Headache [Unknown]
  - Nasopharyngitis [Unknown]
  - Skin infection [Unknown]
  - Abdominal discomfort [Unknown]
  - Abdominal pain upper [Unknown]
